FAERS Safety Report 15779073 (Version 1)
Quarter: 2019Q1

REPORT INFORMATION
  Report Type: Spontaneous
  Country: DE (occurrence: DE)
  Receive Date: 20190101
  Receipt Date: 20190101
  Transmission Date: 20190417
  Serious: Yes (Other)
  Sender: FDA-Public Use
  Company Number: PHHY2018DE197813

PATIENT
  Age: 61 Year
  Sex: Female

DRUGS (2)
  1. LEVOFLOXACIN HEXAL [Suspect]
     Active Substance: LEVOFLOXACIN
     Dosage: 250 MG, QD
     Route: 065
     Dates: start: 20181205, end: 20181207
  2. LEVOFLOXACIN HEXAL [Suspect]
     Active Substance: LEVOFLOXACIN
     Indication: PYELITIS
     Dosage: 1 DF, QD
     Route: 065
     Dates: start: 20181201, end: 20181204

REACTIONS (6)
  - Electrocardiogram QRS complex prolonged [Unknown]
  - Electrocardiogram QT prolonged [Unknown]
  - Glomerular filtration rate decreased [Unknown]
  - Cardiac failure [Unknown]
  - Drug hypersensitivity [Unknown]
  - Bundle branch block left [Unknown]

NARRATIVE: CASE EVENT DATE: 20181204
